FAERS Safety Report 16096959 (Version 2)
Quarter: 2019Q2

REPORT INFORMATION
  Report Type: Report from Study
  Country: CA (occurrence: CA)
  Receive Date: 20190320
  Receipt Date: 20190416
  Transmission Date: 20190711
  Serious: Yes (Hospitalization)
  Sender: FDA-Public Use
  Company Number: PHHY2019CA058015

PATIENT
  Age: 50 Year
  Sex: Female
  Weight: 107 kg

DRUGS (1)
  1. AFINITOR [Suspect]
     Active Substance: EVEROLIMUS
     Indication: BREAST CANCER METASTATIC
     Dosage: 10 MG, UNK
     Route: 048
     Dates: start: 20181228

REACTIONS (10)
  - Cough [Recovered/Resolved]
  - Blood alkaline phosphatase increased [Unknown]
  - Infection [Unknown]
  - Pyrexia [Not Recovered/Not Resolved]
  - Lung consolidation [Recovered/Resolved]
  - Sepsis [Recovered/Resolved]
  - Pleural effusion [Not Recovered/Not Resolved]
  - Blood creatinine increased [Recovered/Resolved]
  - Chills [Not Recovered/Not Resolved]
  - Tachycardia [Recovered/Resolved]

NARRATIVE: CASE EVENT DATE: 20190307
